FAERS Safety Report 24307061 (Version 1)
Quarter: 2024Q3

REPORT INFORMATION
  Report Type: Spontaneous
  Country: US (occurrence: None)
  Receive Date: 20240910
  Receipt Date: 20240910
  Transmission Date: 20241016
  Serious: Yes (Hospitalization)
  Sender: Public
  Company Number: None

PATIENT
  Age: 59 Year
  Sex: Female

DRUGS (2)
  1. TOBRAMYCIN [Suspect]
     Active Substance: TOBRAMYCIN\TOBRAMYCIN SULFATE
     Indication: Respiratory disorder
     Dosage: 3 TIMES A DAY FOR 28 DAYS ON AND 28 DAYS OFF TOBRAMYCIN FREQUENCY: 2 TIMES A DAY FOR 28 DAYS ON, THE
     Route: 055
     Dates: start: 202208
  2. CAYSTON [Suspect]
     Active Substance: AZTREONAM

REACTIONS (1)
  - Dyspnoea [None]

NARRATIVE: CASE EVENT DATE: 20240730
